FAERS Safety Report 14638349 (Version 10)
Quarter: 2019Q3

REPORT INFORMATION
  Report Type: Report from Study
  Country: GB (occurrence: GB)
  Receive Date: 20180314
  Receipt Date: 20190913
  Transmission Date: 20191004
  Serious: Yes (Hospitalization, Disabling, Other)
  Sender: FDA-Public Use
  Company Number: GB-BRISTOL-MYERS SQUIBB COMPANY-BMS-2016-111155

PATIENT
  Sex: Female

DRUGS (4)
  1. ABATACEPT [Suspect]
     Active Substance: ABATACEPT
     Indication: PRODUCT USED FOR UNKNOWN INDICATION
     Dosage: 125 MILLIGRAM
     Route: 058
     Dates: start: 20161130
  2. ABATACEPT [Suspect]
     Active Substance: ABATACEPT
     Indication: RHEUMATOID ARTHRITIS
     Dosage: 125 MG, QWK
     Route: 058
     Dates: start: 20161130
  3. ABATACEPT [Suspect]
     Active Substance: ABATACEPT
     Indication: PRODUCT USED FOR UNKNOWN INDICATION
     Dosage: 125 MG, Q2WK
     Route: 058
  4. METHOTREXATE. [Concomitant]
     Active Substance: METHOTREXATE
     Indication: PRODUCT USED FOR UNKNOWN INDICATION
     Route: 065

REACTIONS (14)
  - Disability [Unknown]
  - Arthritis [Unknown]
  - Off label use [Unknown]
  - Gait disturbance [Unknown]
  - Ulcer [Unknown]
  - Vomiting [Unknown]
  - Urinary tract infection [Unknown]
  - Middle ear effusion [Unknown]
  - Dizziness [Unknown]
  - Cystitis [Unknown]
  - Product dose omission [Unknown]
  - Cellulitis [Unknown]
  - Infection [Unknown]
  - Condition aggravated [Unknown]
